FAERS Safety Report 13302720 (Version 1)
Quarter: 2017Q1

REPORT INFORMATION
  Report Type: Spontaneous
  Country: US (occurrence: US)
  Receive Date: 20170307
  Receipt Date: 20170307
  Transmission Date: 20170428
  Serious: Yes (Other)
  Sender: FDA-Public Use
  Company Number: US-BAUSCH-BL-2017-004958

PATIENT
  Age: 59 Year
  Sex: Female
  Weight: 60.84 kg

DRUGS (5)
  1. UCERIS [Suspect]
     Active Substance: BUDESONIDE
     Indication: COLITIS ULCERATIVE
     Dosage: ONE ADMINISTRATION TWICE DAILY.
     Route: 054
     Dates: start: 20170213, end: 201702
  2. UCERIS [Suspect]
     Active Substance: BUDESONIDE
     Dosage: ONE ADMINISTRATION TWICE DAILY
     Route: 054
     Dates: start: 201702
  3. ELIQUIS [Concomitant]
     Active Substance: APIXABAN
     Indication: THROMBOSIS
  4. OMEPRAZOLE. [Concomitant]
     Active Substance: OMEPRAZOLE
     Indication: PRODUCT USED FOR UNKNOWN INDICATION
  5. CELEBREX [Concomitant]
     Active Substance: CELECOXIB
     Indication: PRODUCT USED FOR UNKNOWN INDICATION

REACTIONS (3)
  - Haemorrhage [Unknown]
  - Product container issue [Unknown]
  - Drug dose omission [Unknown]

NARRATIVE: CASE EVENT DATE: 201702
